FAERS Safety Report 6715576-9 (Version None)
Quarter: 2010Q2

REPORT INFORMATION
  Report Type: 
  Country: None (occurrence: None)
  Receive Date: 20100507
  Receipt Date: 20100428
  Transmission Date: 20101027
  Serious: Yes (Hospitalization, Other)
  Sender: FDA-Public Use
  Company Number: PHHY2010DE27468

PATIENT
  Sex: Female

DRUGS (2)
  1. ACLASTA [Suspect]
     Indication: OSTEOPOROSIS
     Dosage: UNK
     Route: 042
     Dates: start: 20100412
  2. ACETYLSALICYLIC ACID [Concomitant]
     Dosage: 100 MG, PER DAY
     Route: 048

REACTIONS (9)
  - ABDOMINAL PAIN UPPER [None]
  - FALL [None]
  - GASTRIC DISORDER [None]
  - HEAD INJURY [None]
  - INFLUENZA LIKE ILLNESS [None]
  - LACERATION [None]
  - NAUSEA [None]
  - PERIPHERAL VASCULAR DISORDER [None]
  - VOMITING [None]
